FAERS Safety Report 11864493 (Version 1)
Quarter: 2015Q4

REPORT INFORMATION
  Report Type: Spontaneous
  Country: FR (occurrence: FR)
  Receive Date: 20151223
  Receipt Date: 20151223
  Transmission Date: 20160305
  Serious: Yes (Hospitalization)
  Sender: FDA-Public Use
  Company Number: FR-ABBVIE-15P-056-1525097-00

PATIENT
  Age: 51 Year
  Sex: Male

DRUGS (4)
  1. APRANAX [Concomitant]
     Active Substance: NAPROXEN
     Indication: PRODUCT USED FOR UNKNOWN INDICATION
  2. ULTANE [Suspect]
     Active Substance: SEVOFLURANE
     Indication: OFF LABEL USE
     Route: 055
     Dates: start: 20150821, end: 20150828
  3. ULTANE [Suspect]
     Active Substance: SEVOFLURANE
     Indication: INTRACRANIAL PRESSURE INCREASED
  4. TRAMADOL. [Concomitant]
     Active Substance: TRAMADOL
     Indication: PRODUCT USED FOR UNKNOWN INDICATION

REACTIONS (8)
  - Hypophosphataemia [Recovering/Resolving]
  - Proteinuria [Recovering/Resolving]
  - Hypocalcaemia [Recovering/Resolving]
  - Hypomagnesaemia [Recovering/Resolving]
  - Blood urea increased [Recovering/Resolving]
  - Off label use [Unknown]
  - Polyuria [Recovering/Resolving]
  - Acute kidney injury [Recovering/Resolving]

NARRATIVE: CASE EVENT DATE: 20150825
